FAERS Safety Report 5041443-5 (Version None)
Quarter: 2006Q2

REPORT INFORMATION
  Report Type: 
  Country: None (occurrence: None)
  Receive Date: 20060627
  Receipt Date: 20060613
  Transmission Date: 20061013
  Serious: Yes (Hospitalization)
  Sender: FDA-Public Use
  Company Number: B0427513A

PATIENT
  Age: 66 Year
  Sex: Female

DRUGS (6)
  1. AVANDIA [Suspect]
  2. RABEPRAZOLE SODIUM [Concomitant]
  3. ENALAPRIL MALEATE [Concomitant]
  4. FELODIPINE [Concomitant]
  5. RAMIPRIL [Concomitant]
  6. HYDROCHLOROTHIAZIDE [Concomitant]

REACTIONS (10)
  - ANAEMIA [None]
  - ANISOCYTOSIS [None]
  - BLOOD LACTATE DEHYDROGENASE INCREASED [None]
  - ELLIPTOCYTOSIS [None]
  - IMMUNE SYSTEM DISORDER [None]
  - MEGAKARYOCYTES INCREASED [None]
  - MELAENA [None]
  - MONOCYTE PERCENTAGE INCREASED [None]
  - POLYCHROMASIA [None]
  - THROMBOCYTOPENIA [None]
